FAERS Safety Report 23454453 (Version 1)
Quarter: 2024Q1

REPORT INFORMATION
  Report Type: Spontaneous
  Country: US (occurrence: US)
  Receive Date: 20240130
  Receipt Date: 20240130
  Transmission Date: 20240410
  Serious: Yes (Hospitalization)
  Sender: FDA-Public Use
  Company Number: US-TEVA-VS-3148373

PATIENT
  Age: 26 Year
  Sex: Male

DRUGS (10)
  1. BUPRENORPHINE [Suspect]
     Active Substance: BUPRENORPHINE
     Indication: Drug withdrawal syndrome
     Route: 065
  2. CHLORDIAZEPOXIDE [Suspect]
     Active Substance: CHLORDIAZEPOXIDE
     Indication: Alcohol withdrawal syndrome
     Route: 048
  3. CHLORDIAZEPOXIDE [Suspect]
     Active Substance: CHLORDIAZEPOXIDE
     Indication: Alcohol withdrawal syndrome
     Route: 065
  4. BUPRENORPHINE\NALOXONE [Suspect]
     Active Substance: BUPRENORPHINE\NALOXONE
     Indication: Drug use disorder
     Dosage: RECEIVED ONE DOSE, THEN SCHEDULED FOR THREE TIMES DAILY DOSING
     Route: 065
  5. BUPRENORPHINE\NALOXONE [Suspect]
     Active Substance: BUPRENORPHINE\NALOXONE
     Indication: Drug use disorder
     Dosage: 2MG/0.5MG; SINGLE DOSE
     Route: 065
  6. BUPRENORPHINE\NALOXONE [Suspect]
     Active Substance: BUPRENORPHINE\NALOXONE
     Indication: Drug use disorder
     Route: 065
  7. HYDROMORPHONE [Suspect]
     Active Substance: HYDROMORPHONE
     Indication: Drug withdrawal syndrome
     Route: 042
  8. METHAMPHETAMINE [Suspect]
     Active Substance: METHAMPHETAMINE
     Indication: Substance use disorder
     Route: 065
  9. FENTANYL [Suspect]
     Active Substance: FENTANYL\FENTANYL CITRATE
     Indication: Substance use disorder
     Dosage: RECEIVED FENTANYL BASELINE OF 2GM FOR MANY MONTHS
     Route: 042
  10. LORAZEPAM [Suspect]
     Active Substance: LORAZEPAM
     Indication: Drug withdrawal syndrome
     Route: 042

REACTIONS (3)
  - Drug withdrawal syndrome [Unknown]
  - Drug ineffective [Unknown]
  - Drug abuse [Unknown]
